FAERS Safety Report 9225744 (Version 2)
Quarter: 2013Q2

REPORT INFORMATION
  Report Type: Spontaneous
  Country: FR (occurrence: FR)
  Receive Date: 20130411
  Receipt Date: 20130506
  Transmission Date: 20140414
  Serious: Yes (Other)
  Sender: FDA-Public Use
  Company Number: FR-GLAXOSMITHKLINE-B0881694A

PATIENT
  Age: 27 Year
  Sex: Female
  Weight: 43 kg

DRUGS (4)
  1. TROBALT [Suspect]
     Indication: PARTIAL SEIZURES
     Dosage: 100MG THREE TIMES PER DAY
     Route: 048
     Dates: start: 201211, end: 20121219
  2. VIMPAT [Concomitant]
     Indication: PARTIAL SEIZURES
     Dosage: 200MG PER DAY
     Route: 065
  3. LAMICTAL [Concomitant]
     Indication: PARTIAL SEIZURES
     Route: 065
  4. KEPPRA [Concomitant]
     Indication: PARTIAL SEIZURES
     Route: 065

REACTIONS (3)
  - Depression [Recovered/Resolved]
  - Negative thoughts [Recovered/Resolved]
  - Epilepsy [Recovered/Resolved]
